FAERS Safety Report 13298377 (Version 5)
Quarter: 2019Q1

REPORT INFORMATION
  Report Type: Spontaneous
  Country: US (occurrence: US)
  Receive Date: 20170306
  Receipt Date: 20190117
  Transmission Date: 20190417
  Serious: No
  Sender: FDA-Public Use
  Company Number: US-009507513-1202USA04145

PATIENT
  Age: 66 Year
  Sex: Female

DRUGS (4)
  1. SINEMET [Suspect]
     Active Substance: CARBIDOPA\LEVODOPA
     Indication: PARKINSON^S DISEASE
     Dosage: 600-150
     Route: 048
     Dates: start: 201008
  2. SINEMET [Suspect]
     Active Substance: CARBIDOPA\LEVODOPA
     Dosage: ONE AND 1/4 TABLET EVERY 3 1/2 HOURS
     Route: 048
  3. SINEMET [Suspect]
     Active Substance: CARBIDOPA\LEVODOPA
     Dosage: 25/100MG PILL, 3 TIMES A DAY
     Route: 048
     Dates: start: 20181101
  4. SYNTHROID [Concomitant]
     Active Substance: LEVOTHYROXINE SODIUM
     Dosage: 0.125 MG, UNK

REACTIONS (10)
  - Drug hypersensitivity [Unknown]
  - Drug effect incomplete [Unknown]
  - Drug ineffective [Unknown]
  - Dystonia [Recovered/Resolved]
  - Tremor [Not Recovered/Not Resolved]
  - Depression [Not Recovered/Not Resolved]
  - Dyskinesia [Not Recovered/Not Resolved]
  - Insomnia [Unknown]
  - Gait disturbance [Not Recovered/Not Resolved]
  - Dyskinesia [Recovered/Resolved]

NARRATIVE: CASE EVENT DATE: 20170213
